FAERS Safety Report 24584792 (Version 1)
Quarter: 2024Q4

REPORT INFORMATION
  Report Type: Spontaneous
  Country: CN (occurrence: CN)
  Receive Date: 20241106
  Receipt Date: 20241106
  Transmission Date: 20250115
  Serious: Yes (Life-Threatening)
  Sender: ELI LILLY AND COMPANY
  Company Number: CN-Merck Healthcare KGaA-2024058283

PATIENT
  Age: 76 Year
  Sex: Male

DRUGS (5)
  1. ERBITUX [Suspect]
     Active Substance: CETUXIMAB
     Indication: Colon neoplasm
     Dosage: 700 MG, UNKNOWN
     Route: 041
     Dates: start: 20241012, end: 20241012
  2. IRINOTECAN HYDROCHLORIDE [Suspect]
     Active Substance: IRINOTECAN HYDROCHLORIDE
     Indication: Colon neoplasm
     Dosage: 0.25 G, DAILY
     Route: 041
     Dates: start: 20241012, end: 20241012
  3. LEVOLEUCOVORIN CALCIUM [Suspect]
     Active Substance: LEVOLEUCOVORIN CALCIUM
     Indication: Colon neoplasm
     Dosage: 300 MG, DAILY
     Route: 041
     Dates: start: 20241011, end: 20241011
  4. FLUOROURACIL [Suspect]
     Active Substance: FLUOROURACIL
     Indication: Colon neoplasm
     Dosage: 0.5 G, DAILY
     Route: 041
     Dates: start: 20241012, end: 20241012
  5. FLUOROURACIL [Suspect]
     Active Substance: FLUOROURACIL
     Dosage: 3.25 UNK
     Route: 041
     Dates: start: 20241012, end: 20241012

REACTIONS (1)
  - White blood cell count decreased [Recovering/Resolving]

NARRATIVE: CASE EVENT DATE: 20241015
